FAERS Safety Report 12826568 (Version 3)
Quarter: 2018Q1

REPORT INFORMATION
  Report Type: Report from Study
  Country: FR (occurrence: FR)
  Receive Date: 20161007
  Receipt Date: 20180326
  Transmission Date: 20180508
  Serious: Yes (Hospitalization)
  Sender: FDA-Public Use
  Company Number: FR-PFIZER INC-2016460087

PATIENT
  Age: 11 Year
  Sex: Female
  Weight: 43 kg

DRUGS (4)
  1. ATGAM [Suspect]
     Active Substance: EQUINE THYMOCYTE IMMUNE GLOBULIN
     Indication: APLASTIC ANAEMIA
     Dosage: 40 MG/KG, DAILY
     Route: 042
     Dates: start: 20150727, end: 20150730
  2. SANDIMMUN [Suspect]
     Active Substance: CYCLOSPORINE
     Indication: APLASTIC ANAEMIA
     Dosage: 2.32 MG/KG, DAILY
     Route: 042
     Dates: start: 20150801, end: 20150805
  3. POLARAMINE [Concomitant]
     Active Substance: DEXCHLORPHENIRAMINE MALEATE
     Indication: PREMEDICATION
  4. SOLU-MEDROL [Concomitant]
     Active Substance: METHYLPREDNISOLONE SODIUM SUCCINATE
     Dosage: UNK
     Dates: start: 20150727, end: 20150730

REACTIONS (6)
  - Lung disorder [Recovering/Resolving]
  - Serum sickness [Recovered/Resolved]
  - Pyrexia [Unknown]
  - Epstein-Barr virus infection [Recovering/Resolving]
  - Pulmonary sepsis [Recovering/Resolving]
  - Viral myocarditis [Recovering/Resolving]

NARRATIVE: CASE EVENT DATE: 20150801
